FAERS Safety Report 19394700 (Version 1)
Quarter: 2021Q2

REPORT INFORMATION
  Report Type: Report from Study
  Country: KR (occurrence: KR)
  Receive Date: 20210609
  Receipt Date: 20210609
  Transmission Date: 20210717
  Serious: Yes (Other)
  Sender: FDA-Public Use
  Company Number: KR-NALPROPION PHARMACEUTICALS INC.-2021-013248

PATIENT

DRUGS (5)
  1. CONTRAVE [Suspect]
     Active Substance: BUPROPION HYDROCHLORIDE\NALTREXONE HYDROCHLORIDE
     Dosage: 1 TABLET EVERY MORNING, 1 TABLET EVERY EVENING
     Route: 065
     Dates: start: 20190704, end: 20190710
  2. CONTRAVE [Suspect]
     Active Substance: BUPROPION HYDROCHLORIDE\NALTREXONE HYDROCHLORIDE
     Dosage: 2 TABLET EVERY MORNING, 2 TABLET EVERY EVENING
     Route: 065
     Dates: start: 20190722, end: 20190730
  3. CONTRAVE [Suspect]
     Active Substance: BUPROPION HYDROCHLORIDE\NALTREXONE HYDROCHLORIDE
     Dosage: 2 TAB?DAY TIME, 1 TAB?NIGHT TIME
     Route: 065
     Dates: start: 20190711, end: 20190721
  4. SCD MAGNESIUM OXIDE [Concomitant]
     Indication: CONSTIPATION PROPHYLAXIS
     Dosage: 2 TABS, 3 TIMES A DAY
     Route: 048
     Dates: start: 20190627
  5. CONTRAVE [Suspect]
     Active Substance: BUPROPION HYDROCHLORIDE\NALTREXONE HYDROCHLORIDE
     Indication: PRODUCT USED FOR UNKNOWN INDICATION
     Dosage: ONCE IN THE MORNING
     Route: 065
     Dates: start: 20190627, end: 20190703

REACTIONS (1)
  - Seizure anoxic [Recovered/Resolved]

NARRATIVE: CASE EVENT DATE: 20190730
